FAERS Safety Report 7024665-3 (Version None)
Quarter: 2010Q4

REPORT INFORMATION
  Report Type: 
  Country: None (occurrence: None)
  Receive Date: 20101001
  Receipt Date: 20100922
  Transmission Date: 20110411
  Serious: No
  Sender: FDA-Public Use
  Company Number: US-PFIZER INC-2010120906

PATIENT
  Sex: Male
  Weight: 104.31 kg

DRUGS (2)
  1. ALPRAZOLAM [Suspect]
     Indication: ANXIETY
     Dosage: 0.25 MG, AS NEEDED
     Route: 048
     Dates: start: 20100823
  2. CLARINEX [Concomitant]
     Indication: HYPERSENSITIVITY
     Dosage: 5 MG, 1X/DAY
     Route: 048

REACTIONS (1)
  - HYPOSOMNIA [None]
